FAERS Safety Report 10031365 (Version 1)
Quarter: 2014Q1

REPORT INFORMATION
  Report Type: Spontaneous
  Country: US (occurrence: US)
  Receive Date: 20140324
  Receipt Date: 20140324
  Transmission Date: 20141002
  Serious: Yes (Other)
  Sender: FDA-Public Use
  Company Number: US-SUN PHARMACEUTICAL INDUSTRIES LTD-2014SUN00602

PATIENT
  Age: 44 Year
  Sex: Male

DRUGS (1)
  1. BUPROPION HYDROCHLORIDE EXTENDED-RELEASE TABLETS, USP (SR) 100MG [Suspect]
     Indication: DEPRESSION
     Dosage: 2100 MG, QD
     Route: 045

REACTIONS (7)
  - Epistaxis [Recovered/Resolved]
  - Hypoaesthesia [Recovered/Resolved]
  - Drug abuse [Unknown]
  - Intentional drug misuse [Unknown]
  - Decreased appetite [Recovered/Resolved]
  - Malaise [Recovered/Resolved]
  - Paranoia [Recovered/Resolved]
